FAERS Safety Report 6830525-0 (Version None)
Quarter: 2010Q3

REPORT INFORMATION
  Report Type: 
  Country: None (occurrence: None)
  Receive Date: 20100712
  Receipt Date: 20100630
  Transmission Date: 20110219
  Serious: No
  Sender: FDA-Public Use
  Company Number: 2009BI041499

PATIENT
  Sex: Female

DRUGS (1)
  1. TYSABRI [Suspect]
     Indication: MULTIPLE SCLEROSIS
     Route: 042
     Dates: start: 20080605, end: 20100208

REACTIONS (6)
  - BALANCE DISORDER [None]
  - FATIGUE [None]
  - FEELING HOT [None]
  - MULTIPLE SCLEROSIS RELAPSE [None]
  - PERIPHERAL COLDNESS [None]
  - VISUAL IMPAIRMENT [None]
